FAERS Safety Report 5814591-7 (Version None)
Quarter: 2008Q3

REPORT INFORMATION
  Report Type: 
  Country: None (occurrence: None)
  Receive Date: 20080718
  Receipt Date: 20071029
  Transmission Date: 20090109
  Serious: No
  Sender: FDA-Public Use
  Company Number: US-KINGPHARMUSA00001-K200701396

PATIENT

DRUGS (1)
  1. LEVOXYL [Suspect]
     Dosage: 88 MCG, UNK

REACTIONS (6)
  - ABDOMINAL DISTENSION [None]
  - BODY TEMPERATURE INCREASED [None]
  - DRY SKIN [None]
  - EATING DISORDER [None]
  - INSOMNIA [None]
  - PALPITATIONS [None]
